FAERS Safety Report 8777730 (Version 2)
Quarter: 2012Q4

REPORT INFORMATION
  Report Type: 
  Country: PL (occurrence: PL)
  Receive Date: 20120911
  Receipt Date: 20121024
  Transmission Date: 20130627
  Serious: Yes (Other)
  Sender: FDA-Public Use
  Company Number: PL-ROCHE-1119520

PATIENT
  Age: 36 Year
  Sex: Female

DRUGS (5)
  1. TRASTUZUMAB [Suspect]
     Indication: BREAST CANCER
     Route: 065
  2. TRASTUZUMAB [Suspect]
     Route: 065
  3. DOXORUBICIN HCL [Concomitant]
     Dosage: total cumulative dose 440 mg/m2
     Route: 065
  4. CYCLOPHOSPHAMIDE [Concomitant]
  5. TAMOXIFEN [Concomitant]

REACTIONS (3)
  - Left ventricular dysfunction [Recovered/Resolved]
  - Cardiac arrest [Recovered/Resolved]
  - Ventricular fibrillation [Recovered/Resolved]
